FAERS Safety Report 19269820 (Version 2)
Quarter: 2022Q1

REPORT INFORMATION
  Report Type: Spontaneous
  Country: FR (occurrence: FR)
  Receive Date: 20210518
  Receipt Date: 20220221
  Transmission Date: 20220423
  Serious: Yes (Other)
  Sender: FDA-Public Use
  Company Number: None

PATIENT
  Age: 47 Year
  Sex: Male
  Weight: 81 kg

DRUGS (8)
  1. RAMIPRIL [Interacting]
     Active Substance: RAMIPRIL
     Indication: Acute coronary syndrome
     Route: 048
     Dates: start: 202007, end: 20200807
  2. Atorvastatin, Ezetimibe [Concomitant]
     Dosage: STRENGTH: 10 MG / 80 MG
  3. TICAGRELOR [Concomitant]
     Active Substance: TICAGRELOR
     Dosage: STRENGTH: 90 MG
  4. PANTOPRAZOLE [Concomitant]
     Active Substance: PANTOPRAZOLE
  5. SPIRONOLACTONE [Concomitant]
     Active Substance: SPIRONOLACTONE
  6. FUROSEMIDE [Concomitant]
     Active Substance: FUROSEMIDE
  7. BISOPROLOL FUMARATE [Concomitant]
     Active Substance: BISOPROLOL FUMARATE
  8. KARDEGIC [Concomitant]
     Active Substance: ASPIRIN DL-LYSINE
     Dosage: STRENGTH: 75 MG

REACTIONS (5)
  - Chest pain [Recovered/Resolved]
  - Malaise [Recovered/Resolved]
  - Device interaction [Unknown]
  - Hypotension [Recovered/Resolved]
  - Apheresis related complication [Recovered/Resolved]

NARRATIVE: CASE EVENT DATE: 20200807
